FAERS Safety Report 4478412-X (Version None)
Quarter: 2004Q4

REPORT INFORMATION
  Report Type: 
  Country: None (occurrence: None)
  Receive Date: 20041018
  Receipt Date: 20041018
  Transmission Date: 20050328
  Serious: Yes (Other)
  Sender: FDA-Public Use
  Company Number: None

PATIENT
  Age: 54 Year
  Sex: Male
  Weight: 102.5129 kg

DRUGS (1)
  1. NIACIN [Suspect]
     Indication: DYSLIPIDAEMIA
     Dosage: ONCE PO HS
     Route: 048
     Dates: start: 20040303, end: 20040310

REACTIONS (2)
  - AMNESIA [None]
  - DEPRESSED LEVEL OF CONSCIOUSNESS [None]
